FAERS Safety Report 20659410 (Version 5)
Quarter: 2023Q1

REPORT INFORMATION
  Report Type: Spontaneous
  Country: US (occurrence: US)
  Receive Date: 20220331
  Receipt Date: 20230201
  Transmission Date: 20230418
  Serious: No
  Sender: FDA-Public Use
  Company Number: US-PFIZER INC-2021786337

PATIENT
  Age: 58 Year
  Sex: Female

DRUGS (3)
  1. IBRANCE [Suspect]
     Active Substance: PALBOCICLIB
     Dosage: 125 MG
     Dates: start: 20210422
  2. IBRANCE [Suspect]
     Active Substance: PALBOCICLIB
     Dosage: 125 MG
     Dates: start: 20210401
  3. IBRANCE [Suspect]
     Active Substance: PALBOCICLIB
     Dosage: 100 MG

REACTIONS (14)
  - Nausea [Unknown]
  - Headache [Unknown]
  - Alopecia [Unknown]
  - Hypoaesthesia [Unknown]
  - Pain [Unknown]
  - Temperature intolerance [Unknown]
  - Paraesthesia [Unknown]
  - Fatigue [Unknown]
  - Feeling abnormal [Unknown]
  - Vomiting [Unknown]
  - Malaise [Unknown]
  - COVID-19 [Unknown]
  - Tremor [Unknown]
  - Product dose omission issue [Unknown]
